FAERS Safety Report 6530990-2 (Version None)
Quarter: 2010Q1

REPORT INFORMATION
  Report Type: 
  Country: None (occurrence: None)
  Receive Date: 20100108
  Receipt Date: 20090811
  Transmission Date: 20100710
  Serious: No
  Sender: FDA-Public Use
  Company Number: A0801637A

PATIENT
  Age: 48 Year
  Sex: Female

DRUGS (3)
  1. LOVAZA [Suspect]
     Dosage: 2CAP TWICE PER DAY
     Route: 048
  2. SYNTHROID [Concomitant]
  3. FEMALE HORMONE [Concomitant]

REACTIONS (2)
  - DYSPEPSIA [None]
  - FLATULENCE [None]
